FAERS Safety Report 20534060 (Version 6)
Quarter: 2022Q3

REPORT INFORMATION
  Report Type: Report from Study
  Country: BE (occurrence: BE)
  Receive Date: 20220301
  Receipt Date: 20220720
  Transmission Date: 20221027
  Serious: Yes (Hospitalization)
  Sender: FDA-Public Use
  Company Number: BE-ABBVIE-22K-013-4297227-00

PATIENT
  Sex: Male
  Weight: 68 kg

DRUGS (17)
  1. CARBIDOPA\LEVODOPA [Suspect]
     Active Substance: CARBIDOPA\LEVODOPA
     Indication: Parkinson^s disease
     Route: 050
     Dates: start: 20170130
  2. CARBIDOPA\LEVODOPA [Suspect]
     Active Substance: CARBIDOPA\LEVODOPA
     Dosage: MD 5.5 ML; CD 4.0 ML/HR DURING 16 HOURS; ED 2.5 ML
     Route: 050
     Dates: start: 20211214, end: 20220223
  3. CARBIDOPA\LEVODOPA [Suspect]
     Active Substance: CARBIDOPA\LEVODOPA
     Dosage: MD 5.5 ML; CD 3.8 ML/HR DURING 16 HOURS; ED 3.0 ML
     Route: 050
     Dates: start: 20220223, end: 20220317
  4. CARBIDOPA\LEVODOPA [Suspect]
     Active Substance: CARBIDOPA\LEVODOPA
     Dosage: MD 5.5 ML; CD 3.8 ML/HR DURING 16 HOURS; ED 3.0 ML
     Route: 050
     Dates: start: 20220317, end: 20220707
  5. CARBIDOPA\LEVODOPA [Suspect]
     Active Substance: CARBIDOPA\LEVODOPA
     Dosage: MD 5.0 ML; CD 3.6 ML/HR DURING 16 HOURS; ED 3.0 ML
     Route: 050
     Dates: start: 20220707
  6. ALGOSTASE [Concomitant]
     Indication: Product used for unknown indication
  7. ASPIRIN [Concomitant]
     Active Substance: ASPIRIN
     Indication: Product used for unknown indication
     Dosage: AT 8.00 HOUR
  8. AZILECT [Concomitant]
     Active Substance: RASAGILINE MESYLATE
     Indication: Product used for unknown indication
     Dosage: AT 7.00 HOUR
  9. BISOPROLOL [Concomitant]
     Active Substance: BISOPROLOL
     Indication: Product used for unknown indication
     Dosage: HALF A TABLET?AT 8.00 AND 20.00 HOUR
  10. PRAMIPEXOLE [Concomitant]
     Active Substance: PRAMIPEXOLE
     Indication: Product used for unknown indication
     Dosage: AT 7.00 HOUR
  11. ESOMEPRAZOLE [Concomitant]
     Active Substance: ESOMEPRAZOLE
     Indication: Product used for unknown indication
     Dosage: AT 8.00 HOUR
  12. PROLOPA DISPERSIBLE [Concomitant]
     Indication: Product used for unknown indication
     Dosage: AT 7.00 HOUR
  13. BENSERAZIDE\LEVODOPA [Concomitant]
     Active Substance: BENSERAZIDE\LEVODOPA
     Indication: Product used for unknown indication
     Dosage: HALF A TABLET?9.15-11.30-13.45-16.00-18.15-20.30-22.45
  14. BENSERAZIDE\LEVODOPA [Concomitant]
     Active Substance: BENSERAZIDE\LEVODOPA
     Indication: Product used for unknown indication
     Dosage: TWICE A DAY AT 23.00 HOUR
  15. TERAZOSAB [Concomitant]
     Indication: Product used for unknown indication
     Dosage: AT 12.00 HOUR
  16. TRAMADOL [Concomitant]
     Active Substance: TRAMADOL
     Indication: Product used for unknown indication
  17. ZOCOR [Concomitant]
     Active Substance: SIMVASTATIN
     Indication: Product used for unknown indication
     Dosage: AT 20.00 HOUR

REACTIONS (6)
  - Back pain [Not Recovered/Not Resolved]
  - Weight decreased [Unknown]
  - Fatigue [Unknown]
  - Hyperkinesia [Recovering/Resolving]
  - Dyskinesia [Recovering/Resolving]
  - On and off phenomenon [Unknown]

NARRATIVE: CASE EVENT DATE: 20220221
